FAERS Safety Report 4275722-6 (Version None)
Quarter: 2004Q1

REPORT INFORMATION
  Report Type: 
  Country: None (occurrence: None)
  Receive Date: 20040121
  Receipt Date: 20031203
  Transmission Date: 20041129
  Serious: Yes (Hospitalization)
  Sender: FDA-Public Use
  Company Number: DE-GLAXOSMITHKLINE-D0042581A

PATIENT
  Age: 84 Year
  Sex: Male

DRUGS (3)
  1. LEUKERAN [Suspect]
     Indication: CHRONIC LYMPHOCYTIC LEUKAEMIA
     Dosage: 6MG SEE DOSAGE TEXT
     Route: 048
     Dates: start: 20001201
  2. SOTALEX MITE [Concomitant]
     Indication: ATRIAL FIBRILLATION
     Dosage: 80MG PER DAY
     Route: 065
     Dates: start: 19990401
  3. ASPIRIN [Concomitant]
     Indication: ATRIAL FIBRILLATION
     Dosage: 100MG PER DAY
     Route: 065
     Dates: start: 19990401

REACTIONS (2)
  - CEREBRAL DISORDER [None]
  - LEUKOENCEPHALOPATHY [None]
